FAERS Safety Report 8462486-5 (Version None)
Quarter: 2012Q2

REPORT INFORMATION
  Report Type: 
  Country: None (occurrence: None)
  Receive Date: 20120625
  Receipt Date: 20120611
  Transmission Date: 20120825
  Serious: Yes (Hospitalization)
  Sender: FDA-Public Use
  Company Number: US-ELI_LILLY_AND_COMPANY-US201104006648

PATIENT
  Sex: Female

DRUGS (6)
  1. FORTEO [Suspect]
     Dosage: 20 UG, QD
     Route: 065
  2. THERAFLU [Concomitant]
  3. FORTEO [Suspect]
     Dosage: 20 UG, QD
     Route: 065
  4. FORTEO [Suspect]
     Indication: OSTEOPOROSIS
     Dosage: 20 UG, QD
     Route: 065
     Dates: start: 20101001, end: 20101101
  5. FORTEO [Suspect]
     Dosage: 20 UG, QD
     Route: 065
  6. FORTEO [Suspect]
     Dosage: 20 UG, QD
     Route: 065

REACTIONS (13)
  - SINUS CONGESTION [None]
  - PAIN [None]
  - NAUSEA [None]
  - BLOOD SODIUM DECREASED [None]
  - BLADDER DISCOMFORT [None]
  - SINUS DISORDER [None]
  - INJECTION SITE PAIN [None]
  - DRUG DOSE OMISSION [None]
  - BACK PAIN [None]
  - SLEEP DISORDER DUE TO A GENERAL MEDICAL CONDITION [None]
  - MUSCLE SPASMS [None]
  - MALAISE [None]
  - ANAEMIA [None]
